FAERS Safety Report 4436434-9 (Version None)
Quarter: 2004Q3

REPORT INFORMATION
  Report Type: 
  Country: None (occurrence: None)
  Receive Date: 20040830
  Receipt Date: 20040511
  Transmission Date: 20050211
  Serious: No
  Sender: FDA-Public Use
  Company Number: US-BRISTOL-MYERS SQUIBB COMPANY-12585071

PATIENT
  Age: 50 Year
  Sex: Male

DRUGS (1)
  1. ABILIFY [Suspect]
     Dosage: ON ARIPIPRAZOLE FOR 6 MONTHS TO A YEAR
     Route: 048

REACTIONS (1)
  - WEIGHT INCREASED [None]
